FAERS Safety Report 12440066 (Version 1)
Quarter: 2016Q2

REPORT INFORMATION
  Report Type: Report from Study
  Country: US (occurrence: US)
  Receive Date: 20160606
  Receipt Date: 20160606
  Transmission Date: 20160815
  Serious: No
  Sender: FDA-Public Use
  Company Number: US-AMGEN-USASL2015056323

PATIENT
  Age: 86 Year
  Sex: Female
  Weight: 55.33 kg

DRUGS (1)
  1. PROCRIT [Suspect]
     Active Substance: ERYTHROPOIETIN
     Indication: PRODUCT USED FOR UNKNOWN INDICATION
     Dosage: 40000 UNIT, QMO
     Route: 058

REACTIONS (11)
  - Haematocrit decreased [Recovered/Resolved]
  - Haemoglobin decreased [Recovered/Resolved]
  - Carbon dioxide decreased [Recovered/Resolved]
  - Blood urea increased [Recovered/Resolved]
  - Red blood cell count decreased [Recovered/Resolved]
  - Eosinophil count abnormal [Recovered/Resolved]
  - Basophil count abnormal [Recovered/Resolved]
  - Blood creatinine increased [Recovered/Resolved]
  - Mean cell haemoglobin increased [Recovered/Resolved]
  - Glomerular filtration rate decreased [Recovered/Resolved]
  - Mean platelet volume decreased [Recovered/Resolved]
